FAERS Safety Report 7356696-8 (Version None)
Quarter: 2011Q1

REPORT INFORMATION
  Report Type: 
  Country: None (occurrence: None)
  Receive Date: 20110316
  Receipt Date: 20110311
  Transmission Date: 20110831
  Serious: Yes (Death, Hospitalization)
  Sender: FDA-Public Use
  Company Number: PHHY2010US87145

PATIENT
  Sex: Female

DRUGS (2)
  1. NEORAL [Suspect]
     Indication: RHEUMATOID ARTHRITIS
  2. NEORAL [Suspect]
     Indication: POLYMYOSITIS

REACTIONS (1)
  - DEATH [None]
